FAERS Safety Report 4455241-4 (Version None)
Quarter: 2004Q3

REPORT INFORMATION
  Report Type: 
  Country: None (occurrence: None)
  Receive Date: 20040830
  Receipt Date: 20040505
  Transmission Date: 20050211
  Serious: No
  Sender: FDA-Public Use
  Company Number: 205975

PATIENT
  Age: 27 Year
  Sex: Male

DRUGS (11)
  1. XOLAIR [Suspect]
     Indication: ASTHMA
     Dosage: 300 MG,Q4W,SUBCUTANEOUS
     Route: 058
     Dates: start: 20031209
  2. LIPITOR [Concomitant]
  3. COMBIVENT (ALBUTEROL, ALBUTEROL SULFATE, IPRATROPIUM BROMIDE) [Concomitant]
  4. PULMICORT INHALER (BUDESONIDE) [Concomitant]
  5. UNIPHYL (FORMOTEROL FUMARATE) [Concomitant]
  6. FOSAMAX [Concomitant]
  7. VITAMIN D (CHOLECALCIFEROL) [Concomitant]
  8. TUMS (CALCIUM CARBONATE) [Concomitant]
  9. MYCELEX [Concomitant]
  10. PREDNISONE [Concomitant]
  11. ALBUTEROL NEBULIZER (ALBUTEROL, ALBUTEROL SULFATE) [Concomitant]

REACTIONS (1)
  - BLOOD CREATINE PHOSPHOKINASE INCREASED [None]
